FAERS Safety Report 8045624-8 (Version None)
Quarter: 2012Q1

REPORT INFORMATION
  Report Type: 
  Country: None (occurrence: None)
  Receive Date: 20120113
  Receipt Date: 20120109
  Transmission Date: 20120608
  Serious: Yes (Other)
  Sender: FDA-Public Use
  Company Number: US-BAYER-2011-120800

PATIENT
  Sex: Female

DRUGS (1)
  1. CLIMARA PRO [Suspect]
     Dosage: UNK
     Dates: start: 20110921, end: 20111220

REACTIONS (4)
  - HYPOMENORRHOEA [None]
  - MENORRHAGIA [None]
  - VAGINAL HAEMORRHAGE [None]
  - MIGRAINE [None]
